FAERS Safety Report 22260780 (Version 1)
Quarter: 2023Q2

REPORT INFORMATION
  Report Type: Spontaneous
  Country: US (occurrence: None)
  Receive Date: 20230425
  Receipt Date: 20230425
  Transmission Date: 20230722
  Serious: Yes (Hospitalization)
  Sender: FDA-Public Use
  Company Number: None

PATIENT
  Sex: Male

DRUGS (1)
  1. VOSEVI [Suspect]
     Active Substance: SOFOSBUVIR\VELPATASVIR\VOXILAPREVIR
     Indication: Hepatic failure
     Dosage: OTHER QUANTITY : 400/100/100;?FREQUENCY : DAILY;?
     Route: 048

REACTIONS (4)
  - Haemoptysis [None]
  - Coma [None]
  - Cardiac arrest [None]
  - Haemorrhage [None]
